FAERS Safety Report 5545915-6 (Version None)
Quarter: 2007Q4

REPORT INFORMATION
  Report Type: 
  Country: None (occurrence: None)
  Receive Date: 20071211
  Receipt Date: 20071113
  Transmission Date: 20080405
  Serious: Yes (Other)
  Sender: FDA-Public Use
  Company Number: US-ASTRAZENECA-2007UW26264

PATIENT

DRUGS (2)
  1. SYMBICORT [Suspect]
     Route: 055
  2. FLOVENT [Concomitant]

REACTIONS (1)
  - PALPITATIONS [None]
